FAERS Safety Report 8212699-2 (Version None)
Quarter: 2012Q1

REPORT INFORMATION
  Report Type: 
  Country: None (occurrence: None)
  Receive Date: 20120228
  Receipt Date: 20111111
  Transmission Date: 20120608
  Serious: Yes (Hospitalization, Other)
  Sender: FDA-Public Use
  Company Number: RB-34267-2011

PATIENT
  Sex: Male

DRUGS (4)
  1. SUBOXONE [Suspect]
     Indication: DRUG DEPENDENCE
     Dosage: (VARIED DOSES OF 8 TO 32 MG DAILY TRANSPLACENTAL)
     Route: 064
     Dates: start: 20101201, end: 20110327
  2. TOPAMAX [Suspect]
     Indication: MIGRAINE
     Dosage: (TRANSPLACENTAL)
     Dates: start: 20100701, end: 20110901
  3. SUBOXONE [Suspect]
     Indication: DRUG DEPENDENCE
     Dosage: TRANSPLACENTAL
     Route: 064
     Dates: end: 20100101
  4. KLONOPIN [Suspect]
     Indication: ANXIETY
     Dosage: (TRANSPLACENTAL)
     Route: 064
     Dates: start: 20100701, end: 20110407

REACTIONS (4)
  - DRUG WITHDRAWAL SYNDROME NEONATAL [None]
  - CRYING [None]
  - TREMOR [None]
  - FOETAL EXPOSURE DURING PREGNANCY [None]
